FAERS Safety Report 10010828 (Version 2)
Quarter: 2014Q1

REPORT INFORMATION
  Report Type: Spontaneous
  Country: US (occurrence: US)
  Receive Date: 20140314
  Receipt Date: 20140314
  Transmission Date: 20141002
  Serious: Yes (Hospitalization)
  Sender: FDA-Public Use
  Company Number: US-ELI_LILLY_AND_COMPANY-US201311007905

PATIENT
  Age: 60 Year
  Sex: Female

DRUGS (5)
  1. ADCIRCA [Suspect]
     Indication: PRODUCT USED FOR UNKNOWN INDICATION
     Route: 065
  2. EPOPROSTENOL SODIUM [Suspect]
     Indication: PULMONARY ARTERIAL HYPERTENSION
     Dosage: 40 UNK, UNK
     Route: 042
     Dates: start: 20100306
  3. TYVASO [Suspect]
     Dosage: UNK, UNKNOWN
     Route: 065
  4. TRACLEER [Concomitant]
  5. OXYGEN [Concomitant]
     Dosage: UNK

REACTIONS (10)
  - Cardiac failure [Unknown]
  - Pneumonia [Unknown]
  - Anxiety [Not Recovered/Not Resolved]
  - Throat irritation [Not Recovered/Not Resolved]
  - Sensation of foreign body [Recovered/Resolved]
  - Chest discomfort [Unknown]
  - Nausea [Unknown]
  - Pain [Not Recovered/Not Resolved]
  - Headache [Not Recovered/Not Resolved]
  - Nervousness [Unknown]
